FAERS Safety Report 10079730 (Version 3)
Quarter: 2014Q2

REPORT INFORMATION
  Report Type: Spontaneous
  Country: US (occurrence: US)
  Receive Date: 20140415
  Receipt Date: 20140610
  Transmission Date: 20141212
  Serious: Yes (Hospitalization)
  Sender: FDA-Public Use
  Company Number: US-GLAXOSMITHKLINE-A1032629A

PATIENT
  Sex: Female
  Weight: 108.5 kg

DRUGS (1)
  1. AVANDIA [Suspect]
     Indication: TYPE 2 DIABETES MELLITUS
     Dosage: 4MG PER DAY
     Route: 048
     Dates: start: 200401, end: 200705

REACTIONS (5)
  - Coronary artery occlusion [Unknown]
  - Cardiac failure congestive [Unknown]
  - Chest pain [Unknown]
  - Coronary artery disease [Unknown]
  - Cardiac disorder [Unknown]
